FAERS Safety Report 11455684 (Version 1)
Quarter: 2015Q3

REPORT INFORMATION
  Report Type: Spontaneous
  Country: US (occurrence: US)
  Receive Date: 20150903
  Receipt Date: 20150903
  Transmission Date: 20151125
  Serious: No
  Sender: FDA-Public Use
  Company Number: US-BEH-2015049122

PATIENT
  Sex: Male
  Weight: 104 kg

DRUGS (20)
  1. LMX [Concomitant]
     Active Substance: LIDOCAINE
  2. GABAPENTIN. [Concomitant]
     Active Substance: GABAPENTIN
  3. EXCEDRIN MIGRAINE [Concomitant]
     Active Substance: ACETAMINOPHEN\ASPIRIN\CAFFEINE
  4. NEXIUM [Concomitant]
     Active Substance: ESOMEPRAZOLE MAGNESIUM
  5. MAGNESIUM SULFATE. [Concomitant]
     Active Substance: MAGNESIUM SULFATE
  6. DAILY MULTI VITAMIN [Concomitant]
  7. LEVOTHYROXINE. [Concomitant]
     Active Substance: LEVOTHYROXINE
  8. SODIUM CHLORIDE. [Concomitant]
     Active Substance: SODIUM CHLORIDE
  9. CINNAMON. [Concomitant]
     Active Substance: CINNAMON
  10. GLYBURIDE. [Concomitant]
     Active Substance: GLYBURIDE
  11. ZEMAIRA [Suspect]
     Active Substance: .ALPHA.1-PROTEINASE INHIBITOR HUMAN
     Indication: ALPHA-1 ANTI-TRYPSIN DEFICIENCY
     Route: 042
  12. DIPHENHYDRAMINE. [Concomitant]
     Active Substance: DIPHENHYDRAMINE
  13. PREDNISONE. [Concomitant]
     Active Substance: PREDNISONE
  14. ATENOLOL. [Concomitant]
     Active Substance: ATENOLOL
  15. COMBIVENT [Concomitant]
     Active Substance: ALBUTEROL SULFATE\IPRATROPIUM BROMIDE
  16. ASA [Concomitant]
     Active Substance: ASPIRIN
  17. EPIPEN INJECTOR [Concomitant]
  18. FIORINAL [Concomitant]
     Active Substance: ASPIRIN\BUTALBITAL\CAFFEINE
     Dosage: 50-325-40 MG
  19. ALBUTEROL. [Concomitant]
     Active Substance: ALBUTEROL
     Route: 055
  20. DIAZEPAM. [Concomitant]
     Active Substance: DIAZEPAM

REACTIONS (3)
  - Head discomfort [Unknown]
  - Migraine [Unknown]
  - Headache [Unknown]
